FAERS Safety Report 21406851 (Version 1)
Quarter: 2022Q4

REPORT INFORMATION
  Report Type: Spontaneous
  Country: US (occurrence: None)
  Receive Date: 20221003
  Receipt Date: 20221003
  Transmission Date: 20230113
  Serious: Yes (Other)
  Sender: FDA-Public Use
  Company Number: None

PATIENT
  Sex: 0

DRUGS (1)
  1. THYMOGLOBULIN [Suspect]
     Active Substance: LAPINE T-LYMPHOCYTE IMMUNE GLOBULIN
     Dosage: FREQUENCY : DAILY;?
     Route: 042

REACTIONS (4)
  - Product quality issue [None]
  - Therapeutic product ineffective [None]
  - Transplant rejection [None]
  - Product quality issue [None]
